FAERS Safety Report 21139833 (Version 1)
Quarter: 2022Q3

REPORT INFORMATION
  Report Type: Report from Study
  Country: US (occurrence: US)
  Receive Date: 20220728
  Receipt Date: 20220728
  Transmission Date: 20221026
  Serious: Yes (Other)
  Sender: FDA-Public Use
  Company Number: US-BRISTOL-MYERS SQUIBB COMPANY-2022-076966

PATIENT
  Age: 46 Year
  Sex: Male
  Weight: 81.6 kg

DRUGS (2)
  1. REVLIMID [Suspect]
     Active Substance: LENALIDOMIDE
     Indication: Plasma cell myeloma
     Route: 048
     Dates: start: 20190828
  2. METOPROLOL [Concomitant]
     Active Substance: METOPROLOL
     Indication: Aortic aneurysm

REACTIONS (2)
  - Feeling abnormal [Unknown]
  - Headache [Unknown]
